FAERS Safety Report 11175171 (Version 2)
Quarter: 2016Q1

REPORT INFORMATION
  Report Type: Spontaneous
  Country: US (occurrence: US)
  Receive Date: 20150609
  Receipt Date: 20160113
  Transmission Date: 20160525
  Serious: Yes (Other)
  Sender: FDA-Public Use
  Company Number: US-ASTRAZENECA-2015SE54727

PATIENT
  Age: 56 Year
  Sex: Female
  Weight: 135.2 kg

DRUGS (13)
  1. ATENOLOL. [Suspect]
     Active Substance: ATENOLOL
     Route: 048
  2. GLIMEPIRIDE. [Concomitant]
     Active Substance: GLIMEPIRIDE
     Indication: DIABETES MELLITUS
     Route: 048
  3. AMLODIPINE [Concomitant]
     Active Substance: AMLODIPINE BESYLATE
     Route: 048
  4. CITALOPRAM [Concomitant]
     Active Substance: CITALOPRAM HYDROBROMIDE
     Route: 048
  5. LANTUS [Concomitant]
     Active Substance: INSULIN GLARGINE
  6. LOSARTAN-HCT [Concomitant]
     Indication: BLOOD PRESSURE MEASUREMENT
     Dosage: 100 MG/25 MG, EVERY DAY
     Route: 048
  7. CLONIDINE. [Concomitant]
     Active Substance: CLONIDINE
     Indication: BLOOD PRESSURE MEASUREMENT
     Route: 048
  8. METFORMIN [Concomitant]
     Active Substance: METFORMIN HYDROCHLORIDE
     Indication: DIABETES MELLITUS
     Route: 048
  9. GABAPENTIN. [Concomitant]
     Active Substance: GABAPENTIN
     Indication: PAIN IN EXTREMITY
     Route: 048
  10. LANTUS [Concomitant]
     Active Substance: INSULIN GLARGINE
  11. BYDUREON [Suspect]
     Active Substance: EXENATIDE
     Indication: TYPE 2 DIABETES MELLITUS
     Route: 058
     Dates: start: 2015
  12. LANTUS [Concomitant]
     Active Substance: INSULIN GLARGINE
  13. PRAVASTATIN [Concomitant]
     Active Substance: PRAVASTATIN\PRAVASTATIN SODIUM
     Indication: BLOOD CHOLESTEROL
     Route: 048

REACTIONS (9)
  - Intentional product misuse [Unknown]
  - Gait disturbance [Unknown]
  - Peripheral swelling [Unknown]
  - Product quality issue [Unknown]
  - Drug dose omission [Unknown]
  - Fall [Unknown]
  - Device defective [Unknown]
  - Limb injury [Unknown]
  - Pain [Unknown]

NARRATIVE: CASE EVENT DATE: 201505
